FAERS Safety Report 6623428-8 (Version None)
Quarter: 2010Q1

REPORT INFORMATION
  Report Type: 
  Country: None (occurrence: None)
  Receive Date: 20100304
  Receipt Date: 20100219
  Transmission Date: 20100710
  Serious: Yes (Hospitalization, Other)
  Sender: FDA-Public Use
  Company Number: 007481

PATIENT
  Age: 81 Year
  Sex: Male
  Weight: 94 kg

DRUGS (11)
  1. PREDNISOLONE [Suspect]
     Indication: PEMPHIGOID
     Dosage: (10 MG ORAL)
     Route: 048
     Dates: start: 20090401
  2. RIVAROXABAN [Suspect]
     Indication: THROMBOSIS PROPHYLAXIS
     Dosage: (10 MG QD ORAL)
     Route: 048
     Dates: start: 20091216, end: 20100118
  3. OMEPRAZOLE [Concomitant]
  4. SIMVASTATIN [Concomitant]
  5. ALENDRONIC ACID [Concomitant]
  6. ATENOLOL [Concomitant]
  7. CALCICHEW D3 [Concomitant]
  8. DOXAZOSIN [Concomitant]
  9. DOXYCYCLINE [Concomitant]
  10. ENALAPRIL MALEATE [Concomitant]
  11. MICARDIS HCT [Concomitant]

REACTIONS (7)
  - FALL [None]
  - HAEMOGLOBIN DECREASED [None]
  - HAEMORRHAGE [None]
  - INTERNATIONAL NORMALISED RATIO INCREASED [None]
  - JOINT DISLOCATION [None]
  - PROTHROMBIN TIME PROLONGED [None]
  - SKIN LACERATION [None]
